FAERS Safety Report 8618595-0 (Version None)
Quarter: 2012Q3

REPORT INFORMATION
  Report Type: 
  Country: None (occurrence: None)
  Receive Date: 20120824
  Receipt Date: 20120817
  Transmission Date: 20120928
  Serious: No
  Sender: FDA-Public Use
  Company Number: US-PFIZER INC-2012203374

PATIENT
  Age: 57 Year
  Sex: Female
  Weight: 77.098 kg

DRUGS (3)
  1. WARFARIN SODIUM [Suspect]
     Dosage: ALTERNATING DOSE OF 7.5MG AND 10MG DAILY
  2. REVATIO [Suspect]
     Indication: PULMONARY HYPERTENSION
     Dosage: 20 MG, 3X/DAY
  3. REVATIO [Suspect]
     Dosage: UNK

REACTIONS (3)
  - DRUG INEFFECTIVE [None]
  - DIZZINESS [None]
  - EPISTAXIS [None]
